FAERS Safety Report 7595628-4 (Version None)
Quarter: 2011Q3

REPORT INFORMATION
  Report Type: 
  Country: None (occurrence: None)
  Receive Date: 20110707
  Receipt Date: 20110629
  Transmission Date: 20111222
  Serious: Yes (Death, Hospitalization)
  Sender: FDA-Public Use
  Company Number: US-ABBOTT-11P-163-0734638-00

PATIENT
  Sex: Male

DRUGS (5)
  1. TOPROL-XL [Concomitant]
     Indication: PRODUCT USED FOR UNKNOWN INDICATION
  2. CASODEX [Concomitant]
     Indication: PROSTATE CANCER
  3. UNKNOWN ANTIHYPERTENSIVE MEDICATION [Concomitant]
     Indication: HYPERTENSION
  4. LUPRON DEPOT [Suspect]
     Indication: PROSTATE CANCER
     Dates: start: 19800101, end: 20090101
  5. LUPRON DEPOT [Suspect]
     Dates: start: 20110613

REACTIONS (7)
  - RENAL FAILURE [None]
  - BILE DUCT CANCER [None]
  - GASTRIC DISORDER [None]
  - ASTHENIA [None]
  - URINARY BLADDER HAEMORRHAGE [None]
  - GASTROOESOPHAGEAL REFLUX DISEASE [None]
  - DEHYDRATION [None]
